FAERS Safety Report 21831278 (Version 1)
Quarter: 2023Q1

REPORT INFORMATION
  Report Type: Spontaneous
  Country: US (occurrence: US)
  Receive Date: 20230106
  Receipt Date: 20230106
  Transmission Date: 20230417
  Serious: No
  Sender: FDA-Public Use
  Company Number: US-PFIZER INC-PV202200119417

PATIENT
  Age: 54 Year
  Sex: Female
  Weight: 88.889 kg

DRUGS (1)
  1. DESVENLAFAXINE SUCCINATE [Suspect]
     Active Substance: DESVENLAFAXINE SUCCINATE
     Indication: Major depression
     Dosage: 100 MG, 1X/DAY
     Dates: start: 2009

REACTIONS (2)
  - Rash [Recovered/Resolved]
  - Drug ineffective [Unknown]
